FAERS Safety Report 16590409 (Version 1)
Quarter: 2019Q3

REPORT INFORMATION
  Report Type: Spontaneous
  Country: US (occurrence: US)
  Receive Date: 20190604
  Receipt Date: 20190604
  Transmission Date: 20191004
  Serious: No
  Sender: FDA-Public Use
  Company Number: None

PATIENT
  Age: 73 Year
  Sex: Male
  Weight: 97 kg

DRUGS (1)
  1. INTRON A [Suspect]
     Active Substance: INTERFERON ALFA-2B
     Dosage: ?          OTHER DOSE:89.6 MILLIUNIT;?
     Dates: end: 20120713

REACTIONS (13)
  - Blood bilirubin increased [None]
  - Lung consolidation [None]
  - Dehydration [None]
  - Anxiety [None]
  - Aspartate aminotransferase increased [None]
  - Alanine aminotransferase increased [None]
  - Platelet count decreased [None]
  - Fatigue [None]
  - Chest pain [None]
  - Asthenia [None]
  - Vomiting [None]
  - Hyperglycaemia [None]
  - Hypokalaemia [None]

NARRATIVE: CASE EVENT DATE: 20120719
